FAERS Safety Report 8503355-1 (Version None)
Quarter: 2012Q3

REPORT INFORMATION
  Report Type: 
  Country: None (occurrence: None)
  Receive Date: 20120711
  Receipt Date: 20120701
  Transmission Date: 20120928
  Serious: Yes (Other)
  Sender: FDA-Public Use
  Company Number: US-GLAXOSMITHKLINE-A0982967A

PATIENT
  Sex: Female

DRUGS (2)
  1. PAIN MEDICATION [Concomitant]
  2. ALLI [Suspect]
     Indication: WEIGHT DECREASED

REACTIONS (3)
  - DRUG INEFFECTIVE [None]
  - RECTAL HAEMORRHAGE [None]
  - RECTAL DISCHARGE [None]
